FAERS Safety Report 9236857 (Version 3)
Quarter: 2013Q2

REPORT INFORMATION
  Report Type: Spontaneous
  Country: US (occurrence: US)
  Receive Date: 20130417
  Receipt Date: 20130429
  Transmission Date: 20140414
  Serious: Yes (Other)
  Sender: FDA-Public Use
  Company Number: US-TEVA-397689USA

PATIENT
  Age: 64 Year
  Sex: Male

DRUGS (6)
  1. ANAGRELIDE [Suspect]
     Indication: ANTIPLATELET THERAPY
     Dosage: 2 MILLIGRAM DAILY; 2 IN AM AND 2 IN PM
     Route: 048
     Dates: start: 201008
  2. ANAGRELIDE [Suspect]
     Indication: POLYCYTHAEMIA VERA
  3. PENTASA [Concomitant]
     Indication: CROHN^S DISEASE
     Dosage: 1000 MILLIGRAM DAILY;
     Dates: start: 2000
  4. LOVAZA [Concomitant]
     Indication: BLOOD TRIGLYCERIDES
     Dates: start: 2006
  5. AMBIEN [Concomitant]
  6. ALPRAZOLAM [Concomitant]

REACTIONS (13)
  - Eye haemorrhage [Unknown]
  - Cardiac murmur [Unknown]
  - Nausea [Recovered/Resolved]
  - Alopecia [Not Recovered/Not Resolved]
  - Influenza like illness [Recovered/Resolved]
  - Platelet disorder [Unknown]
  - Platelet count increased [Recovering/Resolving]
  - Splenomegaly [Unknown]
  - Seborrhoea [Unknown]
  - Rash macular [Unknown]
  - Contusion [Unknown]
  - Muscle twitching [Unknown]
  - Pain [Unknown]
